FAERS Safety Report 5202785-3 (Version None)
Quarter: 2007Q1

REPORT INFORMATION
  Report Type: 
  Country: None (occurrence: None)
  Receive Date: 20070109
  Receipt Date: 20070102
  Transmission Date: 20070707
  Serious: Yes (Hospitalization)
  Sender: FDA-Public Use
  Company Number: FR-SHR-FR-2006-029922

PATIENT
  Age: 49 Year
  Sex: Female
  Weight: 50 kg

DRUGS (3)
  1. BETASERON [Suspect]
     Indication: RELAPSING-REMITTING MULTIPLE SCLEROSIS
     Route: 058
     Dates: start: 20030708
  2. BETASERON [Suspect]
     Route: 058
     Dates: start: 20051010, end: 20061026
  3. DOLIPRANE [Concomitant]
     Route: 048

REACTIONS (4)
  - ARTHRALGIA [None]
  - BODY TEMPERATURE INCREASED [None]
  - CUTANEOUS SARCOIDOSIS [None]
  - PULMONARY SARCOIDOSIS [None]
